FAERS Safety Report 12188795 (Version 1)
Quarter: 2016Q1

REPORT INFORMATION
  Report Type: Spontaneous
  Country: US (occurrence: US)
  Receive Date: 20160317
  Receipt Date: 20160317
  Transmission Date: 20160526
  Serious: Yes (Death)
  Sender: FDA-Public Use
  Company Number: US-TAIHO ONCOLOGY INC-EU-2016-00465

PATIENT
  Age: 60 Year
  Sex: Male

DRUGS (2)
  1. AVASTIN [Concomitant]
     Active Substance: BEVACIZUMAB
     Dosage: NI
  2. LONSURF [Suspect]
     Active Substance: TIPIRACIL HYDROCHLORIDE\TRIFLURIDINE
     Indication: RECTOSIGMOID CANCER
     Route: 048
     Dates: start: 20160113

REACTIONS (1)
  - Death [Fatal]

NARRATIVE: CASE EVENT DATE: 20160304
